FAERS Safety Report 8936305 (Version 1)
Quarter: 2012Q4

REPORT INFORMATION
  Report Type: 
  Country: US (occurrence: US)
  Receive Date: 20121130
  Receipt Date: 20121130
  Transmission Date: 20130627
  Serious: No
  Sender: FDA-Public Use
  Company Number: US-PFIZER INC-2012290987

PATIENT
  Age: 90 Year
  Sex: Female

DRUGS (5)
  1. HYDROXYZINE PAMOATE [Suspect]
     Dosage: UNK
  2. HEPARIN SODIUM [Suspect]
     Dosage: UNK
  3. METHOCARBAMOL [Suspect]
     Dosage: UNK
  4. HYDROCODONE [Suspect]
     Dosage: UNK
  5. ACETYLSALICYLIC ACID [Suspect]
     Dosage: UNK

REACTIONS (1)
  - Drug hypersensitivity [Unknown]
